FAERS Safety Report 19109748 (Version 2)
Quarter: 2021Q2

REPORT INFORMATION
  Report Type: Report from Study
  Country: None (occurrence: US)
  Receive Date: 20210409
  Receipt Date: 20210419
  Transmission Date: 20210717
  Serious: Yes (Other)
  Sender: FDA-Public Use
  Company Number: US-ABBVIE-21K-163-3848728-00

PATIENT
  Age: 72 Year
  Sex: Male
  Weight: 87.17 kg

DRUGS (9)
  1. DUOPA [Suspect]
     Active Substance: CARBIDOPA\LEVODOPA
  2. GALANTAMINE. [Concomitant]
     Active Substance: GALANTAMINE
     Indication: ANXIETY
  3. DUOPA [Suspect]
     Active Substance: CARBIDOPA\LEVODOPA
     Indication: PRODUCT USED FOR UNKNOWN INDICATION
     Route: 050
     Dates: start: 20160216, end: 20210324
  4. CLONAZEPAM. [Concomitant]
     Active Substance: CLONAZEPAM
     Indication: ANXIETY
  5. COVID?19 VACCINE NOS. [Concomitant]
     Active Substance: COVID-19 VACCINE NOS
     Indication: COVID-19 IMMUNISATION
     Dosage: PFIZER
     Route: 030
     Dates: start: 20210131, end: 20210131
  6. COVID?19 VACCINE NOS. [Concomitant]
     Active Substance: COVID-19 VACCINE NOS
     Dosage: PFIZER
     Route: 030
     Dates: start: 20210221, end: 20210221
  7. PAROXETINE. [Concomitant]
     Active Substance: PAROXETINE
     Indication: POST-TRAUMATIC STRESS DISORDER
  8. LORAZEPAM. [Concomitant]
     Active Substance: LORAZEPAM
     Indication: ANXIETY
  9. MIRALAX [Concomitant]
     Active Substance: POLYETHYLENE GLYCOL 3350
     Indication: PRODUCT USED FOR UNKNOWN INDICATION

REACTIONS (8)
  - On and off phenomenon [Not Recovered/Not Resolved]
  - Device dislocation [Recovered/Resolved]
  - Medical device site granuloma [Recovered/Resolved]
  - Mental disorder [Not Recovered/Not Resolved]
  - Fall [Recovered/Resolved]
  - Embedded device [Recovered/Resolved]
  - Device breakage [Recovered/Resolved]
  - Weight decreased [Not Recovered/Not Resolved]

NARRATIVE: CASE EVENT DATE: 2016
